FAERS Safety Report 7981251-6 (Version None)
Quarter: 2011Q4

REPORT INFORMATION
  Report Type: 
  Country: None (occurrence: None)
  Receive Date: 20111215
  Receipt Date: 20111213
  Transmission Date: 20120403
  Serious: Yes (Other)
  Sender: FDA-Public Use
  Company Number: US-PFIZER INC-2011303951

PATIENT
  Sex: Female
  Weight: 65.76 kg

DRUGS (4)
  1. RANITIDINE [Concomitant]
     Indication: DYSPEPSIA
     Dosage: 150 MG, 2X/DAY
  2. LIPITOR [Suspect]
     Indication: BLOOD CHOLESTEROL INCREASED
     Dosage: 40 MG, DAILY
     Route: 048
  3. LIPITOR [Suspect]
     Dosage: UNK
     Route: 048
  4. LIPITOR [Suspect]
     Dosage: 40 MG, DAILY
     Route: 048

REACTIONS (3)
  - CONSTIPATION [None]
  - BLOOD CHOLESTEROL INCREASED [None]
  - ECZEMA [None]
